FAERS Safety Report 26053847 (Version 1)
Quarter: 2025Q4

REPORT INFORMATION
  Report Type: Spontaneous
  Country: US (occurrence: None)
  Receive Date: 20251117
  Receipt Date: 20251117
  Transmission Date: 20260118
  Serious: Yes (Life-Threatening, Disabling)
  Sender: FDA-CTU
  Company Number: None

PATIENT
  Sex: Female

DRUGS (1)
  1. VENLAFAXINE [Suspect]
     Active Substance: VENLAFAXINE HYDROCHLORIDE
     Indication: Depression

REACTIONS (12)
  - Drug withdrawal syndrome [None]
  - Product communication issue [None]
  - Nausea [None]
  - Dizziness [None]
  - Electric shock sensation [None]
  - Depression [None]
  - Fear [None]
  - Anxiety [None]
  - Visual impairment [None]
  - Affect lability [None]
  - Suicidal ideation [None]
  - Drug dependence [None]

NARRATIVE: CASE EVENT DATE: 20120101
